FAERS Safety Report 7418623-4 (Version None)
Quarter: 2011Q2

REPORT INFORMATION
  Report Type: 
  Country: None (occurrence: None)
  Receive Date: 20110415
  Receipt Date: 20101029
  Transmission Date: 20111010
  Serious: Yes (Other)
  Sender: FDA-Public Use
  Company Number: US-BAYER-201022898NA

PATIENT
  Age: 34 Year
  Sex: Female
  Weight: 111.11 kg

DRUGS (6)
  1. YAZ [Suspect]
     Indication: CONTRACEPTION
     Route: 048
     Dates: start: 20071001
  2. METHYLPREDNISOLONE [Concomitant]
  3. METFORMIN HCL [Concomitant]
  4. PIROXICAM [Concomitant]
  5. HYDROCODONE BITARTRATE [Concomitant]
  6. TIZANIDINE [Concomitant]

REACTIONS (4)
  - GALLBLADDER INJURY [None]
  - ABDOMINAL PAIN [None]
  - CHOLECYSTITIS CHRONIC [None]
  - GALLBLADDER NON-FUNCTIONING [None]
